FAERS Safety Report 5235174-6 (Version None)
Quarter: 2007Q1

REPORT INFORMATION
  Report Type: 
  Country: None (occurrence: None)
  Receive Date: 20070211
  Receipt Date: 20070108
  Transmission Date: 20070707
  Serious: Yes (Death, Hospitalization)
  Sender: FDA-Public Use
  Company Number: GR-RB-005072-07

PATIENT
  Age: 42 Year
  Sex: Male

DRUGS (2)
  1. SUBUTEX [Suspect]
     Indication: DRUG USE FOR UNKNOWN INDICATION
     Route: 048
     Dates: start: 20040521, end: 20061201
  2. ZUCLOPENTHIXOL [Concomitant]
     Indication: SCHIZOPHRENIA
     Dosage: DOSAGE UNKNOWN
     Route: 065

REACTIONS (2)
  - DEATH [None]
  - SCHIZOPHRENIA [None]
